FAERS Safety Report 4810950-X (Version None)
Quarter: 2005Q4

REPORT INFORMATION
  Report Type: 
  Country: None (occurrence: None)
  Receive Date: 20051027
  Receipt Date: 20050919
  Transmission Date: 20060501
  Serious: Yes (Hospitalization)
  Sender: FDA-Public Use
  Company Number: IT-ABBOTT-05P-083-0311502-00

PATIENT
  Sex: Female
  Weight: 70 kg

DRUGS (7)
  1. HUMIRA 40 MG/ 0.8 ML PRE-FILLED SYRINGE [Suspect]
     Indication: RHEUMATOID ARTHRITIS
     Route: 058
     Dates: start: 20050610, end: 20050826
  2. HUMIRA 40 MG/ 0.8 ML PRE-FILLED SYRINGE [Suspect]
     Route: 058
     Dates: start: 20050921
  3. RIFAMPICINA [Concomitant]
     Indication: TUBERCULIN TEST POSITIVE
     Dates: start: 20050516
  4. LEFLUNOMIDE [Concomitant]
     Indication: RHEUMATOID ARTHRITIS
     Dates: start: 20041119, end: 20050808
  5. SPIRIVA [Concomitant]
     Indication: BRONCHITIS CHRONIC
     Dates: start: 20050501
  6. ALIFLUS [Concomitant]
     Indication: BRONCHITIS CHRONIC
     Dates: start: 20050501
  7. CLARITHROMYCIN [Concomitant]
     Indication: DRUG USE FOR UNKNOWN INDICATION
     Dates: start: 20050610

REACTIONS (1)
  - BRONCHITIS CHRONIC [None]
